FAERS Safety Report 5537037-5 (Version None)
Quarter: 2007Q4

REPORT INFORMATION
  Report Type: 
  Country: None (occurrence: None)
  Receive Date: 20071204
  Receipt Date: 20071121
  Transmission Date: 20080405
  Serious: Yes (Life-Threatening)
  Sender: FDA-Public Use
  Company Number: 100#03#2007-04931

PATIENT
  Age: 75 Year
  Sex: Male

DRUGS (1)
  1. CITALOPRAM(10 MILLIGRAM) (CITALOPRAM) [Suspect]
     Indication: DEPRESSION
     Dosage: 10 MG ORAL
     Route: 048
     Dates: start: 20070921, end: 20071003

REACTIONS (5)
  - ATRIOVENTRICULAR BLOCK SECOND DEGREE [None]
  - CIRCULATORY COLLAPSE [None]
  - DIZZINESS POSTURAL [None]
  - SINUS BRADYCARDIA [None]
  - SYNCOPE [None]
